FAERS Safety Report 10741742 (Version 1)
Quarter: 2015Q1

REPORT INFORMATION
  Report Type: Spontaneous
  Country: US (occurrence: None)
  Receive Date: 20150123
  Receipt Date: 20150123
  Transmission Date: 20150721
  Serious: No
  Sender: FDA-Public Use
  Company Number: None

PATIENT
  Age: 53 Year
  Sex: Female
  Weight: 45.5 kg

DRUGS (6)
  1. ACETAMINOPHEN. [Concomitant]
     Active Substance: ACETAMINOPHEN
  2. DL-ALPHA TOCOPHEROL [Concomitant]
  3. SENNOSIDES. [Concomitant]
     Active Substance: SENNOSIDES
  4. VITAMIN D3 [Concomitant]
     Active Substance: CHOLECALCIFEROL
  5. ERTAPENEM [Suspect]
     Active Substance: ERTAPENEM
     Indication: OSTEOMYELITIS
     Route: 042
     Dates: start: 20141211, end: 20150120
  6. LEVOTHYROXINE [Concomitant]
     Active Substance: LEVOTHYROXINE

REACTIONS (1)
  - Hallucination [None]

NARRATIVE: CASE EVENT DATE: 20150120
